FAERS Safety Report 8547270-6 (Version None)
Quarter: 2012Q3

REPORT INFORMATION
  Report Type: 
  Country: None (occurrence: None)
  Receive Date: 20120727
  Receipt Date: 20120719
  Transmission Date: 20120928
  Serious: Yes (Other)
  Sender: FDA-Public Use
  Company Number: CN-BAXTER-2012BAX012262

PATIENT
  Sex: Male

DRUGS (7)
  1. CEFTRIAXONE [Suspect]
  2. CEFTRIAXONE [Suspect]
     Indication: CEREBRAL INFARCTION
     Route: 041
     Dates: start: 20091127, end: 20091206
  3. GINKGO [Suspect]
     Indication: CEREBRAL INFARCTION
     Dosage: GINKGO DIPYRIDOLUM
     Route: 041
     Dates: start: 20091202
  4. MECLOFENOXATE [Suspect]
     Indication: CEREBRAL INFARCTION
     Dosage: SHOT
     Dates: start: 20091202
  5. MECLOFENOXATE [Suspect]
  6. SODIUM LACTATE RINGER'S INJECTION [Suspect]
     Indication: CEREBRAL INFARCTION
     Route: 041
     Dates: start: 20091127, end: 20091206
  7. GINKGO [Suspect]

REACTIONS (9)
  - PALLOR [None]
  - CONFUSIONAL STATE [None]
  - CHEST PAIN [None]
  - HEART RATE INCREASED [None]
  - HAEMATURIA [None]
  - RASH [None]
  - BLOOD PRESSURE INCREASED [None]
  - CHILLS [None]
  - PYREXIA [None]
